FAERS Safety Report 10056644 (Version 2)
Quarter: 2014Q2

REPORT INFORMATION
  Report Type: Spontaneous
  Country: US (occurrence: US)
  Receive Date: 20140403
  Receipt Date: 20140605
  Transmission Date: 20141212
  Serious: Yes (Disabling, Other)
  Sender: FDA-Public Use
  Company Number: US-PFIZER INC-2014092592

PATIENT
  Age: 49 Year
  Sex: Female
  Weight: 76.19 kg

DRUGS (3)
  1. LIPITOR [Suspect]
     Indication: LOW DENSITY LIPOPROTEIN INCREASED
     Dosage: 10 MG, DAILY
     Route: 048
     Dates: start: 200105, end: 200106
  2. LIPITOR [Suspect]
     Indication: CARDIOVASCULAR EVENT PROPHYLAXIS
     Dosage: 20 MG, DAILY
     Route: 048
     Dates: start: 200106, end: 200210
  3. LIPITOR [Suspect]
     Dosage: 40 MG, UNK
     Route: 048
     Dates: start: 200210, end: 201111

REACTIONS (2)
  - Type 2 diabetes mellitus [Not Recovered/Not Resolved]
  - Neuropathy peripheral [Not Recovered/Not Resolved]
